FAERS Safety Report 18283297 (Version 8)
Quarter: 2022Q1

REPORT INFORMATION
  Report Type: Report from Study
  Country: CA (occurrence: CA)
  Receive Date: 20200918
  Receipt Date: 20220201
  Transmission Date: 20220424
  Serious: Yes (Hospitalization, Other)
  Sender: FDA-Public Use
  Company Number: PHHY2016CA014506

PATIENT
  Age: 44 Year
  Sex: Female

DRUGS (10)
  1. SANDOSTATIN LAR DEPOT [Suspect]
     Active Substance: OCTREOTIDE ACETATE
     Indication: Carcinoid tumour
     Dosage: 20 MG, QMO (EVERY 4 WEEKS)
     Route: 030
     Dates: start: 20160201, end: 20161013
  2. SANDOSTATIN LAR DEPOT [Suspect]
     Active Substance: OCTREOTIDE ACETATE
     Indication: Neuroendocrine tumour
     Dosage: 20 MG, Q2W
     Route: 030
     Dates: start: 20161108
  3. SANDOSTATIN LAR DEPOT [Suspect]
     Active Substance: OCTREOTIDE ACETATE
     Dosage: 30 MG, Q2W
     Route: 030
  4. SANDOSTATIN LAR DEPOT [Suspect]
     Active Substance: OCTREOTIDE ACETATE
     Dosage: 20 MG, Q2W
     Route: 030
  5. SANDOSTATIN LAR DEPOT [Suspect]
     Active Substance: OCTREOTIDE ACETATE
     Dosage: 30 MG, Q2W
     Route: 030
  6. SANDOSTATIN [Suspect]
     Active Substance: OCTREOTIDE ACETATE
     Indication: Carcinoid tumour
     Dosage: UNK UNK, BID
     Route: 058
     Dates: start: 20151224, end: 20160307
  7. SANDOSTATIN [Suspect]
     Active Substance: OCTREOTIDE ACETATE
     Indication: Neuroendocrine tumour
  8. SANDOSTATIN [Suspect]
     Active Substance: OCTREOTIDE ACETATE
  9. PEGASYS [Concomitant]
     Active Substance: PEGINTERFERON ALFA-2A
     Indication: Product used for unknown indication
     Dosage: 0.5 ML
     Route: 065
  10. HYDROXYUREA [Concomitant]
     Active Substance: HYDROXYUREA
     Indication: Product used for unknown indication
     Dosage: 500 MG, BID
     Route: 065
     Dates: start: 201803

REACTIONS (29)
  - Muscle spasms [Unknown]
  - Diabetes mellitus [Unknown]
  - Blood pressure systolic increased [Unknown]
  - Hyperhidrosis [Unknown]
  - Pain [Unknown]
  - Flushing [Unknown]
  - Chest pain [Unknown]
  - Toothache [Unknown]
  - Tooth infection [Unknown]
  - Anxiety [Unknown]
  - Depression [Unknown]
  - Hormone level abnormal [Unknown]
  - Anger [Unknown]
  - Abdominal pain upper [Unknown]
  - Abdominal discomfort [Unknown]
  - Dehydration [Unknown]
  - Dyspepsia [Unknown]
  - Constipation [Unknown]
  - Dyspnoea [Unknown]
  - Abdominal pain [Recovering/Resolving]
  - SARS-CoV-2 test positive [Unknown]
  - Diarrhoea [Unknown]
  - Injection site pain [Unknown]
  - Product dose omission issue [Unknown]
  - Needle issue [Unknown]
  - Incorrect dose administered [Unknown]
  - Inappropriate schedule of product administration [Unknown]
  - Blood pressure diastolic increased [Unknown]
  - Malaise [Unknown]

NARRATIVE: CASE EVENT DATE: 20160201
